FAERS Safety Report 4755084-8 (Version None)
Quarter: 2005Q3

REPORT INFORMATION
  Report Type: 
  Country: None (occurrence: None)
  Receive Date: 20050825
  Receipt Date: 20050708
  Transmission Date: 20060218
  Serious: Yes (Other)
  Sender: FDA-Public Use
  Company Number: 11779

PATIENT
  Age: 5 Year
  Sex: Female
  Weight: 24.5 kg

DRUGS (1)
  1. PAMIDRONATE DISODIUM [Suspect]
     Indication: OSTEOGENESIS IMPERFECTA
     Dosage: 23.9 MG QD IV
     Route: 042
     Dates: start: 20050523, end: 20050526

REACTIONS (3)
  - FEELING HOT [None]
  - THROMBOPHLEBITIS [None]
  - VEIN PAIN [None]
